FAERS Safety Report 17686915 (Version 5)
Quarter: 2021Q4

REPORT INFORMATION
  Report Type: Other
  Country: CA (occurrence: CA)
  Receive Date: 20200421
  Receipt Date: 20211123
  Transmission Date: 20220303
  Serious: Yes (Hospitalization, Other)
  Sender: FDA-Public Use
  Company Number: CA-002147023-PHHY2018CA138493

PATIENT
  Age: 25 Year
  Sex: Female

DRUGS (12)
  1. XOLAIR [Suspect]
     Active Substance: OMALIZUMAB
     Indication: Chronic spontaneous urticaria
     Route: 058
     Dates: start: 20181015
  2. XOLAIR [Suspect]
     Active Substance: OMALIZUMAB
     Route: 058
     Dates: start: 20200305
  3. XOLAIR [Suspect]
     Active Substance: OMALIZUMAB
     Route: 058
     Dates: start: 20200409
  4. XOLAIR [Suspect]
     Active Substance: OMALIZUMAB
     Route: 058
     Dates: start: 20210428
  5. XOLAIR [Suspect]
     Active Substance: OMALIZUMAB
     Route: 058
     Dates: start: 20200315
  6. ZYRTEC [Concomitant]
     Active Substance: CETIRIZINE HYDROCHLORIDE
     Indication: Chronic spontaneous urticaria
     Dosage: 1 DF, QD
     Route: 048
     Dates: start: 2016
  7. BENADRYL [Concomitant]
     Active Substance: DIPHENHYDRAMINE HYDROCHLORIDE
     Indication: Chronic spontaneous urticaria
     Dosage: 1 DF, PRN
     Route: 048
     Dates: start: 2015
  8. RAMIPRIL [Concomitant]
     Active Substance: RAMIPRIL
     Indication: Product used for unknown indication
     Route: 065
  9. SPIRONOLACTONE [Concomitant]
     Active Substance: SPIRONOLACTONE
     Indication: Product used for unknown indication
     Route: 065
  10. SPIRONOLACTONE [Concomitant]
     Active Substance: SPIRONOLACTONE
     Dosage: UNK
     Route: 065
  11. IVABRADINE [Concomitant]
     Active Substance: IVABRADINE
     Indication: Product used for unknown indication
     Route: 065
  12. TICAGRELOR [Concomitant]
     Active Substance: TICAGRELOR
     Indication: Product used for unknown indication
     Route: 065

REACTIONS (23)
  - Vertigo positional [Unknown]
  - Disorientation [Unknown]
  - Dizziness [Unknown]
  - Coronary artery dissection [Unknown]
  - Myocardial infarction [Unknown]
  - Lower respiratory tract infection [Unknown]
  - Influenza [Unknown]
  - Cough [Unknown]
  - Fatigue [Unknown]
  - Nausea [Unknown]
  - Vision blurred [Unknown]
  - Clumsiness [Unknown]
  - Vomiting [Unknown]
  - Dry mouth [Unknown]
  - General physical health deterioration [Unknown]
  - Insomnia [Unknown]
  - Sinus pain [Unknown]
  - Pain in extremity [Unknown]
  - Illness [Unknown]
  - Dermatitis contact [Unknown]
  - Headache [Unknown]
  - Arthralgia [Unknown]
  - Hypersensitivity [Unknown]

NARRATIVE: CASE EVENT DATE: 20190801
